FAERS Safety Report 8033885-0 (Version None)
Quarter: 2012Q1

REPORT INFORMATION
  Report Type: 
  Country: None (occurrence: None)
  Receive Date: 20120110
  Receipt Date: 20120103
  Transmission Date: 20120608
  Serious: No
  Sender: FDA-Public Use
  Company Number: US-PFIZER INC-2012002223

PATIENT
  Sex: Male

DRUGS (1)
  1. SUTENT [Suspect]
     Indication: METASTATIC RENAL CELL CARCINOMA
     Dosage: UNK
     Dates: start: 20111212

REACTIONS (9)
  - ABDOMINAL PAIN [None]
  - VOMITING [None]
  - RASH [None]
  - ARTHRALGIA [None]
  - HYPERTENSION [None]
  - DECREASED APPETITE [None]
  - ORAL PAIN [None]
  - FATIGUE [None]
  - NAUSEA [None]
